FAERS Safety Report 7284084-1 (Version None)
Quarter: 2011Q1

REPORT INFORMATION
  Report Type: 
  Country: None (occurrence: None)
  Receive Date: 20110209
  Receipt Date: 20110202
  Transmission Date: 20110831
  Serious: Yes (Other)
  Sender: FDA-Public Use
  Company Number: JP-PFIZER INC-2011027302

PATIENT
  Age: 54 Year
  Sex: Male

DRUGS (4)
  1. ODYNE [Concomitant]
     Indication: PROSTATE CANCER
     Route: 048
  2. CASODEX [Concomitant]
     Indication: PROSTATE CANCER
     Route: 048
  3. ESTRACYT [Suspect]
     Indication: PROSTATE CANCER
     Dosage: UNK
     Route: 048
  4. DIETHYLSTILBESTROL [Concomitant]
     Indication: PROSTATE CANCER
     Dosage: UNK
     Route: 048
     Dates: start: 20080101

REACTIONS (2)
  - DESMOID TUMOUR [None]
  - NEOPLASM MALIGNANT [None]
